FAERS Safety Report 6686792-X (Version None)
Quarter: 2010Q2

REPORT INFORMATION
  Report Type: 
  Country: None (occurrence: None)
  Receive Date: 20100415
  Receipt Date: 20100331
  Transmission Date: 20101027
  Serious: Yes (Other)
  Sender: FDA-Public Use
  Company Number: 232164J09USA

PATIENT
  Age: 55 Year
  Sex: Female

DRUGS (5)
  1. REBIF [Suspect]
     Indication: MULTIPLE SCLEROSIS
     Dosage: 22 MCG, 3 IN 1 WK, SUBCUTANEOUS
     Route: 058
     Dates: start: 20090330
  2. REBIF [Suspect]
     Indication: MULTIPLE SCLEROSIS
     Dosage: 22 MCG, 3 IN 1 WK, SUBCUTANEOUS
     Route: 058
     Dates: start: 20090330
  3. LEXAPRO [Concomitant]
  4. CYMBALTA [Concomitant]
  5. WATER PILLS (ALL OTHER THERAPEUTIC PRODUCTS) [Concomitant]

REACTIONS (13)
  - ABDOMINAL PAIN LOWER [None]
  - BLOOD URINE PRESENT [None]
  - CHAPPED LIPS [None]
  - DYSPHAGIA [None]
  - DYSURIA [None]
  - FUNGAL INFECTION [None]
  - MALAISE [None]
  - NIGHTMARE [None]
  - RENAL PAIN [None]
  - SEBORRHOEA [None]
  - SKIN EXFOLIATION [None]
  - URINARY INCONTINENCE [None]
  - VAGINAL HAEMORRHAGE [None]
